FAERS Safety Report 18744020 (Version 1)
Quarter: 2021Q1

REPORT INFORMATION
  Report Type: Spontaneous
  Country: US (occurrence: US)
  Receive Date: 20210114
  Receipt Date: 20210114
  Transmission Date: 20210419
  Serious: Yes (Death, Other)
  Sender: FDA-Public Use
  Company Number: US-BAXTER-2021BAX000665

PATIENT
  Sex: Male

DRUGS (1)
  1. PRISMASOL BGK4/3.5 [Suspect]
     Active Substance: CALCIUM CL\DEXTROSE\LACTIC ACID\MAGNESIUM CL\POTASSIUM CL\SODIUM BICAR\SODIUM CL
     Indication: RENAL REPLACEMENT THERAPY
     Dosage: VIA PRISMAFLEX MACHINE WITH OXIRIS SET
     Route: 010
     Dates: start: 20210104, end: 20210105

REACTIONS (8)
  - Haemodynamic instability [Unknown]
  - Oxygen saturation decreased [Unknown]
  - General physical health deterioration [Unknown]
  - Critical illness [Unknown]
  - Device issue [Unknown]
  - Acute pulmonary oedema [Unknown]
  - Death [Fatal]
  - Respiratory depression [Unknown]

NARRATIVE: CASE EVENT DATE: 20210104
